FAERS Safety Report 5602139-1 (Version None)
Quarter: 2008Q1

REPORT INFORMATION
  Report Type: 
  Country: None (occurrence: None)
  Receive Date: 20080125
  Receipt Date: 20080121
  Transmission Date: 20080703
  Serious: Yes (Death, Hospitalization, Other)
  Sender: FDA-Public Use
  Company Number: PHEH2007US00449

PATIENT
  Age: 11 Month
  Sex: Female
  Weight: 10.8 kg

DRUGS (3)
  1. ELIDEL [Suspect]
     Indication: DERMATITIS
     Route: 061
     Dates: start: 20030101
  2. ELIDEL [Suspect]
     Route: 061
     Dates: start: 20040212
  3. ELIDEL [Suspect]
     Route: 061
     Dates: start: 20040617

REACTIONS (21)
  - ACUTE MYELOID LEUKAEMIA [None]
  - BLAST CELLS PRESENT [None]
  - BLOOD CULTURE POSITIVE [None]
  - BRONCHIOLITIS [None]
  - CONTUSION [None]
  - CORD BLOOD TRANSPLANT THERAPY [None]
  - CRANIAL NERVE PARALYSIS [None]
  - CULTURE STOOL POSITIVE [None]
  - GASTRIC POLYPS [None]
  - LEUKOCYTOSIS [None]
  - MALNUTRITION [None]
  - MYRINGOTOMY [None]
  - OTITIS MEDIA [None]
  - PANCYTOPENIA [None]
  - PETECHIAE [None]
  - PYREXIA [None]
  - RHINORRHOEA [None]
  - SEBORRHOEA [None]
  - THROMBOCYTOPENIA [None]
  - UPPER RESPIRATORY TRACT CONGESTION [None]
  - VIITH NERVE PARALYSIS [None]
